FAERS Safety Report 8976224 (Version 1)
Quarter: 2012Q4

REPORT INFORMATION
  Report Type: 
  Country: US (occurrence: US)
  Receive Date: 20121219
  Receipt Date: 20121219
  Transmission Date: 20130627
  Serious: No
  Sender: FDA-Public Use
  Company Number: US-AMGEN-USASP2012065105

PATIENT
  Sex: Female

DRUGS (6)
  1. PROLIA [Suspect]
     Indication: OSTEOPOROSIS POSTMENOPAUSAL
     Dosage: UNK
     Dates: start: 201205
  2. CALTRATE                           /00944201/ [Concomitant]
     Dosage: UNK UNK, qd
  3. VITAMIN D /00107901/ [Concomitant]
     Dosage: 2000 IU, qd
  4. EVISTA [Concomitant]
     Dosage: UNK
  5. TRICOR                             /00090101/ [Concomitant]
     Dosage: UNK
  6. LIPITOR [Concomitant]
     Dosage: UNK

REACTIONS (1)
  - Onychoclasis [Unknown]
